FAERS Safety Report 23989765 (Version 2)
Quarter: 2024Q3

REPORT INFORMATION
  Report Type: Spontaneous
  Country: ES (occurrence: ES)
  Receive Date: 20240619
  Receipt Date: 20240814
  Transmission Date: 20241017
  Serious: Yes (Other)
  Sender: OTSUKA
  Company Number: ES-OTSUKA-2024_017012

PATIENT
  Age: 12 Year
  Sex: Female

DRUGS (5)
  1. ABILIFY [Suspect]
     Active Substance: ARIPIPRAZOLE
     Indication: Product used for unknown indication
     Dosage: 5 MG, QD (AT NIGHTS)
     Route: 065
  2. ABILIFY [Suspect]
     Active Substance: ARIPIPRAZOLE
     Dosage: 10 MG, BID (EVERY 12 HOURS)
     Route: 065
     Dates: start: 202301
  3. ABILIFY MAINTENA [Suspect]
     Active Substance: ARIPIPRAZOLE
     Indication: Product used for unknown indication
     Dosage: 400 MG EVERY 28 DAYS
     Route: 065
     Dates: start: 202101, end: 202301
  4. RIVOTRIL [Concomitant]
     Active Substance: CLONAZEPAM
     Indication: Product used for unknown indication
     Dosage: 4 MG
     Route: 065
     Dates: start: 202101
  5. RIVOTRIL [Concomitant]
     Active Substance: CLONAZEPAM
     Dosage: 10 MG, BID (MORNINGS AND NIGHTS)
     Route: 065
     Dates: end: 202309

REACTIONS (4)
  - Macular degeneration [Not Recovered/Not Resolved]
  - Product use issue [Unknown]
  - Inappropriate schedule of product administration [Unknown]
  - Therapy change [Unknown]

NARRATIVE: CASE EVENT DATE: 20210101
